FAERS Safety Report 7085272-X (Version None)
Quarter: 2010Q4

REPORT INFORMATION
  Report Type: 
  Country: None (occurrence: None)
  Receive Date: 20101028
  Receipt Date: 20101018
  Transmission Date: 20110411
  Serious: Yes (Hospitalization, Disabling)
  Sender: FDA-Public Use
  Company Number: 2010AP002223

PATIENT
  Age: 63 Year
  Sex: Male

DRUGS (7)
  1. OMEPRAZOLE [Suspect]
     Indication: DYSPEPSIA
     Dosage: 40 MG; QD
  2. LACTULOSE [Concomitant]
  3. SPIRONOLACTONE [Concomitant]
  4. THIAMINE HCL [Concomitant]
  5. NICOTINAMIDE [Concomitant]
  6. RIBOFLAVIN TAB [Concomitant]
  7. THIAMINE HYDROCHLORIDE [Concomitant]

REACTIONS (5)
  - ASTHENIA [None]
  - CONFUSIONAL STATE [None]
  - HEADACHE [None]
  - HYPONATRAEMIA [None]
  - LETHARGY [None]
